FAERS Safety Report 8021677-8 (Version None)
Quarter: 2012Q1

REPORT INFORMATION
  Report Type: 
  Country: None (occurrence: None)
  Receive Date: 20120104
  Receipt Date: 20111221
  Transmission Date: 20120608
  Serious: No
  Sender: FDA-Public Use
  Company Number: PHEH2011US012345

PATIENT
  Sex: Female

DRUGS (10)
  1. PLAVIX [Concomitant]
  2. VITAMIN D [Concomitant]
  3. PEPCID [Concomitant]
  4. VITAMIN B GROUP [Concomitant]
  5. ASPIRIN [Concomitant]
  6. DETROL [Concomitant]
  7. ZOCOR [Concomitant]
  8. SYNTHROID [Concomitant]
  9. POTASSIUM [Concomitant]
  10. TASIGNA [Suspect]
     Route: 048
     Dates: start: 20111102

REACTIONS (5)
  - DECREASED APPETITE [None]
  - FALL [None]
  - WHITE BLOOD CELL COUNT INCREASED [None]
  - ASTHENIA [None]
  - DYSPNOEA [None]
